FAERS Safety Report 8912009 (Version 4)
Quarter: 2013Q1

REPORT INFORMATION
  Report Type: Spontaneous
  Country: JP (occurrence: JP)
  Receive Date: 20121115
  Receipt Date: 20130306
  Transmission Date: 20140127
  Serious: Yes (Life-Threatening)
  Sender: FDA-Public Use
  Company Number: JP-OTSUKA-JP-2012-16782

PATIENT
  Age: 67 Year
  Sex: Female
  Weight: 45 kg

DRUGS (8)
  1. PLETAAL [Suspect]
     Indication: CAROTID ARTERY STENT INSERTION
     Dosage: 100 MG MILLIGRAM(S), BID
     Route: 048
     Dates: start: 20111031
  2. BAYASPIRIN [Suspect]
     Dosage: 100 MG MILLIGRAM(S), QD
     Route: 048
     Dates: start: 20111031
  3. PLAVIX [Suspect]
     Dosage: 75 MG MILLIGRAM(S), QD
     Route: 048
     Dates: start: 20111031
  4. HEPARIN AND PREPARATIONS [Suspect]
     Dosage: 5000 IU, QD
     Route: 042
     Dates: start: 20111107, end: 20111107
  5. NOVASTAN HI [Suspect]
     Indication: HEPARIN-INDUCED THROMBOCYTOPENIA
     Dosage: 2 MG MILLIGRAM(S), DAILY DOSE
     Route: 042
     Dates: start: 20111107, end: 20111107
  6. AMLODIN [Concomitant]
     Dosage: 5 MG MILLIGRAM(S), BID
     Route: 048
     Dates: start: 20111031
  7. GAMOFA [Concomitant]
     Dosage: 20 MG MILLIGRAM(S), BID
     Route: 048
     Dates: start: 20111031
  8. CRESTOR [Concomitant]
     Dosage: 2.5 MG MILLIGRAM(S), QD
     Route: 048
     Dates: start: 20111031

REACTIONS (1)
  - Laryngeal haematoma [Recovered/Resolved]
